FAERS Safety Report 25057004 (Version 2)
Quarter: 2025Q4

REPORT INFORMATION
  Report Type: Spontaneous
  Country: EU (occurrence: EU)
  Receive Date: 20250310
  Receipt Date: 20251201
  Transmission Date: 20260117
  Serious: Yes (Hospitalization, Other)
  Sender: NOVO NORDISK
  Company Number: EU-NOVOPROD-1383438

PATIENT
  Age: 53 Year
  Sex: Male
  Weight: 120 kg

DRUGS (2)
  1. WEGOVY [Suspect]
     Active Substance: SEMAGLUTIDE
     Dosage: UNK (STARTED WITH A HIGH DOSE)
  2. WEGOVY [Suspect]
     Active Substance: SEMAGLUTIDE
     Indication: Product used for unknown indication
     Dosage: UNK

REACTIONS (6)
  - Faecal vomiting [Unknown]
  - Pancreatitis chronic [Unknown]
  - Pancreatitis acute [Not Recovered/Not Resolved]
  - Constipation [Unknown]
  - Weight increased [Unknown]
  - Inappropriate schedule of product administration [Unknown]
